FAERS Safety Report 22231678 (Version 1)
Quarter: 2023Q2

REPORT INFORMATION
  Report Type: Other
  Country: None (occurrence: CN)
  Receive Date: 20230420
  Receipt Date: 20230420
  Transmission Date: 20230722
  Serious: Yes (Other)
  Sender: FDA-Public Use
  Company Number: CN-B.Braun Medical Inc.-2140582

PATIENT
  Age: 3 Day

DRUGS (1)
  1. CEFEPIME HYDROCHLORIDE AND DEXTROSE [Suspect]
     Active Substance: CEFEPIME HYDROCHLORIDE
     Indication: Jaundice hepatocellular
     Route: 042

REACTIONS (2)
  - Off label use [Recovered/Resolved]
  - Dermatitis exfoliative [Recovered/Resolved]
